FAERS Safety Report 13484931 (Version 2)
Quarter: 2017Q2

REPORT INFORMATION
  Report Type: Spontaneous
  Country: JP (occurrence: JP)
  Receive Date: 20170425
  Receipt Date: 20170511
  Transmission Date: 20170830
  Serious: Yes (Life-Threatening, Other)
  Sender: FDA-Public Use
  Company Number: JP-ALVOGEN-2017-ALVOGEN-091991

PATIENT
  Age: 24 Year
  Sex: Female
  Weight: 55 kg

DRUGS (6)
  1. REMIFENTANIL [Suspect]
     Active Substance: REMIFENTANIL
     Indication: GENERAL ANAESTHESIA
     Dosage: ANESTHESIA INITIATED WITH 0.25 MICRO GM/KG/MIN. MAINTAINED 0.1 TO 0.25 MICRO GM/KG/MIN.
  2. ROCURONIUM [Suspect]
     Active Substance: ROCURONIUM BROMIDE
     Indication: GENERAL ANAESTHESIA
  3. SEVOFLURANE. [Suspect]
     Active Substance: SEVOFLURANE
     Indication: GENERAL ANAESTHESIA
  4. BROTIZOLAM [Concomitant]
     Active Substance: BROTIZOLAM
     Indication: PROCEDURAL ANXIETY
  5. FENTANYL. [Suspect]
     Active Substance: FENTANYL
     Indication: GENERAL ANAESTHESIA
     Dosage: ANESTHESIA INITIATED WITH 100 MICRO GM. 50 MICRO GM WAS ADMINISTERED INTERMITTENTLY START OF SURGERY
  6. PROPOFOL. [Suspect]
     Active Substance: PROPOFOL
     Indication: GENERAL ANAESTHESIA
     Dosage: ANESTHESIA INITIATED WITH 5.0 MICROGRAM/ ML. MAINTAINED 2.5 TO 3.3 MICROGRAM/ML

REACTIONS (3)
  - Coma [Unknown]
  - Delayed recovery from anaesthesia [Unknown]
  - Unresponsive to stimuli [Unknown]
